FAERS Safety Report 11599052 (Version 2)
Quarter: 2016Q3

REPORT INFORMATION
  Report Type: Spontaneous
  Country: US (occurrence: US)
  Receive Date: 20151006
  Receipt Date: 20160804
  Transmission Date: 20161109
  Serious: No
  Sender: FDA-Public Use
  Company Number: US-BAYER-2015-431242

PATIENT
  Sex: Male

DRUGS (48)
  1. CLONAZEPAM. [Concomitant]
     Active Substance: CLONAZEPAM
     Indication: NEURALGIA
     Dosage: UNK
     Dates: start: 200704, end: 200908
  2. CLONAZEPAM. [Concomitant]
     Active Substance: CLONAZEPAM
     Indication: HYPOAESTHESIA
     Dosage: UNK
     Dates: start: 200908
  3. CLONAZEPAM. [Concomitant]
     Active Substance: CLONAZEPAM
     Indication: PARAESTHESIA
  4. MONTELUKAST [Concomitant]
     Active Substance: MONTELUKAST SODIUM
     Indication: NEURALGIA
     Dosage: UNK
     Dates: start: 201406
  5. CROMOLYN SODIUM. [Concomitant]
     Active Substance: CROMOLYN SODIUM
     Indication: PARAESTHESIA
  6. BUPROPION. [Concomitant]
     Active Substance: BUPROPION
     Indication: DEPRESSION
     Dosage: UNK
     Dates: start: 200906
  7. CIMETIDINE [Concomitant]
     Active Substance: CIMETIDINE
     Indication: HYPOAESTHESIA
     Dosage: UNK
     Dates: start: 201404
  8. AMITRIPTYLINE [Concomitant]
     Active Substance: AMITRIPTYLINE
     Indication: NEURALGIA
     Dosage: UNK
     Dates: start: 200710
  9. MIRTAZAPINE. [Concomitant]
     Active Substance: MIRTAZAPINE
     Indication: PARAESTHESIA
     Dosage: UNK
     Dates: start: 200711
  10. METANX [Concomitant]
     Active Substance: LEVOMEFOLATE CALCIUM\METHYLCOBALAMIN\PYRIDOXAL PHOSPHATE ANHYDROUS
     Indication: HYPOAESTHESIA
  11. METANX [Concomitant]
     Active Substance: LEVOMEFOLATE CALCIUM\METHYLCOBALAMIN\PYRIDOXAL PHOSPHATE ANHYDROUS
     Indication: NEURALGIA
  12. CIPRO [Suspect]
     Active Substance: CIPROFLOXACIN HYDROCHLORIDE
     Indication: SINUSITIS
     Dosage: 500 MG, BID
     Dates: start: 20080309, end: 20080318
  13. CIMETIDINE [Concomitant]
     Active Substance: CIMETIDINE
     Indication: PARAESTHESIA
     Dosage: UNK
     Dates: start: 201405
  14. MONTELUKAST [Concomitant]
     Active Substance: MONTELUKAST SODIUM
     Indication: HYPOAESTHESIA
  15. CROMOLYN SODIUM. [Concomitant]
     Active Substance: CROMOLYN SODIUM
     Indication: HYPOAESTHESIA
  16. GABAPENTIN. [Concomitant]
     Active Substance: GABAPENTIN
     Indication: DEPRESSION
     Dosage: UNK
     Dates: start: 200812
  17. CYPROHEPTADINE. [Concomitant]
     Active Substance: CYPROHEPTADINE
     Indication: HYPOAESTHESIA
     Dosage: UNK
     Dates: start: 200608
  18. IMITREX [Concomitant]
     Active Substance: SUMATRIPTAN SUCCINATE
     Indication: MIGRAINE
     Dosage: 50 MG, PRN
  19. AMOXICILLIN. [Concomitant]
     Active Substance: AMOXICILLIN
     Indication: GASTRIC INFECTION
  20. CROMOLYN SODIUM. [Concomitant]
     Active Substance: CROMOLYN SODIUM
     Indication: NEURALGIA
     Dosage: UNK
     Dates: start: 201501
  21. GABAPENTIN. [Concomitant]
     Active Substance: GABAPENTIN
     Indication: NEURALGIA
     Dosage: UNK
     Dates: start: 200909
  22. DULOXETINE. [Concomitant]
     Active Substance: DULOXETINE
     Indication: NEURALGIA
  23. VIAGRA [Concomitant]
     Active Substance: SILDENAFIL CITRATE
     Indication: HYPOAESTHESIA
     Dosage: UNK
     Dates: start: 200909
  24. MELOXICAM. [Concomitant]
     Active Substance: MELOXICAM
  25. NORTRIPTYLINE [Concomitant]
     Active Substance: NORTRIPTYLINE
     Indication: NEURALGIA
  26. HYDROXYZINE [Concomitant]
     Active Substance: HYDROXYZINE\HYDROXYZINE HYDROCHLORIDE
     Indication: HYPOAESTHESIA
  27. HYDROXYZINE [Concomitant]
     Active Substance: HYDROXYZINE\HYDROXYZINE HYDROCHLORIDE
     Indication: PARAESTHESIA
  28. DULOXETINE. [Concomitant]
     Active Substance: DULOXETINE
     Indication: PARAESTHESIA
     Dosage: UNK
     Dates: start: 201411
  29. CYPROHEPTADINE. [Concomitant]
     Active Substance: CYPROHEPTADINE
     Indication: PARAESTHESIA
  30. AVELOX [Suspect]
     Active Substance: MOXIFLOXACIN HYDROCHLORIDE
     Indication: SINUSITIS
     Dosage: DAILY DOSE 400 MG
     Route: 048
     Dates: start: 20031230, end: 20040111
  31. NORTRIPTYLINE [Concomitant]
     Active Substance: NORTRIPTYLINE
     Indication: MIGRAINE
     Dosage: UNK
     Dates: start: 200311, end: 201311
  32. MONTELUKAST [Concomitant]
     Active Substance: MONTELUKAST SODIUM
     Indication: PARAESTHESIA
  33. AMITRIPTYLINE [Concomitant]
     Active Substance: AMITRIPTYLINE
     Indication: PARAESTHESIA
     Dosage: UNK
     Dates: start: 201407
  34. METANX [Concomitant]
     Active Substance: LEVOMEFOLATE CALCIUM\METHYLCOBALAMIN\PYRIDOXAL PHOSPHATE ANHYDROUS
     Indication: PARAESTHESIA
  35. CIALIS [Concomitant]
     Active Substance: TADALAFIL
     Indication: SENSORY LOSS
     Dosage: UNK
     Dates: start: 200911
  36. VIAGRA [Concomitant]
     Active Substance: SILDENAFIL CITRATE
     Indication: SENSORY LOSS
  37. VITAMIN D2 [Concomitant]
     Active Substance: ERGOCALCIFEROL
     Indication: VITAMIN D DECREASED
     Dosage: UNK
     Dates: start: 201501, end: 201504
  38. RELPAX [Concomitant]
     Active Substance: ELETRIPTAN HYDROBROMIDE
     Indication: MIGRAINE
     Dosage: 20 MG, PRN
  39. NEXIUM [Concomitant]
     Active Substance: ESOMEPRAZOLE MAGNESIUM
     Indication: GASTROOESOPHAGEAL REFLUX DISEASE
     Dosage: 40 MG, PRN
  40. AMOXICILLIN. [Concomitant]
     Active Substance: AMOXICILLIN
     Indication: SINUSITIS
     Dosage: UNK
     Dates: start: 20090513
  41. CIMETIDINE [Concomitant]
     Active Substance: CIMETIDINE
     Indication: NEURALGIA
     Dosage: UNK
     Dates: start: 201411
  42. AMITRIPTYLINE [Concomitant]
     Active Substance: AMITRIPTYLINE
     Indication: HYPOAESTHESIA
     Dosage: UNK
     Dates: start: 200712
  43. MIRTAZAPINE. [Concomitant]
     Active Substance: MIRTAZAPINE
     Indication: HYPOAESTHESIA
     Dosage: UNK
     Dates: start: 200405
  44. DULOXETINE. [Concomitant]
     Active Substance: DULOXETINE
     Indication: HYPOAESTHESIA
  45. CYPROHEPTADINE. [Concomitant]
     Active Substance: CYPROHEPTADINE
     Indication: NEURALGIA
  46. HYDROXYZINE [Concomitant]
     Active Substance: HYDROXYZINE\HYDROXYZINE HYDROCHLORIDE
     Indication: NEURALGIA
     Dosage: UNK
     Dates: start: 200604, end: 201404
  47. MIRTAZAPINE. [Concomitant]
     Active Substance: MIRTAZAPINE
     Indication: NEURALGIA
     Dosage: UNK
     Dates: start: 200604
  48. BUPROPION. [Concomitant]
     Active Substance: BUPROPION
     Indication: NEURALGIA

REACTIONS (10)
  - Anxiety [None]
  - Anhedonia [None]
  - Paraesthesia [None]
  - Neuropathy peripheral [None]
  - Pain [None]
  - Neuralgia [None]
  - Hypoaesthesia [None]
  - Injury [None]
  - Burning sensation [None]
  - Emotional distress [None]
